FAERS Safety Report 24991463 (Version 3)
Quarter: 2025Q3

REPORT INFORMATION
  Report Type: Spontaneous
  Country: CA (occurrence: CA)
  Receive Date: 20250220
  Receipt Date: 20250707
  Transmission Date: 20251020
  Serious: Yes (Other)
  Sender: LEO PHARM
  Company Number: None

PATIENT
  Age: 12 Year
  Sex: Male
  Weight: 50 kg

DRUGS (1)
  1. PROTOPIC [Suspect]
     Active Substance: TACROLIMUS
     Indication: Eczema
     Route: 003

REACTIONS (6)
  - Bedridden [Recovering/Resolving]
  - Topical steroid withdrawal reaction [Recovering/Resolving]
  - Skin weeping [Recovering/Resolving]
  - Burning sensation [Recovering/Resolving]
  - Blister [Recovering/Resolving]
  - Weight decreased [Recovering/Resolving]
